FAERS Safety Report 9017551 (Version 3)
Quarter: 2013Q1

REPORT INFORMATION
  Report Type: Report from Study
  Country: US (occurrence: US)
  Receive Date: 20130117
  Receipt Date: 20130125
  Transmission Date: 20140127
  Serious: Yes (Other)
  Sender: FDA-Public Use
  Company Number: US-ABBOTT-13P-163-1035295-00

PATIENT
  Age: 38 Year
  Sex: Female

DRUGS (4)
  1. NORVIR [Suspect]
     Indication: ANTIRETROVIRAL THERAPY
     Route: 048
     Dates: start: 20120607
  2. RETROVIR [Suspect]
     Indication: ANTIRETROVIRAL THERAPY
     Route: 048
     Dates: start: 20120405, end: 20120607
  3. COMBIVIR [Suspect]
     Indication: ANTIRETROVIRAL THERAPY
     Dosage: 2 TABS/CAPS DAILY
     Route: 048
  4. REYATAZ [Suspect]
     Indication: ANTIRETROVIRAL THERAPY
     Route: 048

REACTIONS (2)
  - Premature delivery [Recovered/Resolved]
  - Foetal distress syndrome [Recovered/Resolved]
